FAERS Safety Report 19264629 (Version 1)
Quarter: 2021Q2

REPORT INFORMATION
  Report Type: Spontaneous
  Country: CN (occurrence: CN)
  Receive Date: 20210517
  Receipt Date: 20210517
  Transmission Date: 20210717
  Serious: Yes (Hospitalization, Other)
  Sender: FDA-Public Use
  Company Number: CN-GLAXOSMITHKLINE-CN2021APC101684

PATIENT
  Age: 40 Year
  Sex: Female

DRUGS (4)
  1. ZINACEF [Suspect]
     Active Substance: CEFUROXIME SODIUM
     Indication: PELVIC INFLAMMATORY DISEASE
     Dosage: 1.5 G, BID
     Route: 042
     Dates: start: 20210312, end: 20210320
  2. ORNIDAZOLE [Suspect]
     Active Substance: ORNIDAZOLE
     Indication: PELVIC INFLAMMATORY DISEASE
     Dosage: 0.5 G, BID
     Route: 042
     Dates: start: 20210312, end: 20210320
  3. SODIUM CHLORIDE INJECTION [Concomitant]
     Active Substance: SODIUM CHLORIDE
     Indication: VEHICLE SOLUTION USE
     Dosage: UNK
     Dates: start: 20210312, end: 20210320
  4. AMOXICILLIN + CLAVULANATE POTASSIUM [Suspect]
     Active Substance: AMOXICILLIN\CLAVULANATE POTASSIUM
     Indication: PELVIC INFLAMMATORY DISEASE
     Dosage: UNK
     Dates: start: 202008

REACTIONS (19)
  - Hypersensitivity [Unknown]
  - Arthralgia [Recovering/Resolving]
  - Nausea [Recovering/Resolving]
  - Retching [Recovering/Resolving]
  - Dyspnoea [Recovering/Resolving]
  - Condition aggravated [Unknown]
  - Erythema [Not Recovered/Not Resolved]
  - Disease recurrence [Unknown]
  - Diarrhoea [Recovering/Resolving]
  - Chest discomfort [Recovering/Resolving]
  - Pruritus [Not Recovered/Not Resolved]
  - Upper airway obstruction [Not Recovered/Not Resolved]
  - Abdominal pain [Recovering/Resolving]
  - Palpitations [Unknown]
  - Urticaria [Not Recovered/Not Resolved]
  - Asthenia [Unknown]
  - Drug eruption [Unknown]
  - Discomfort [Not Recovered/Not Resolved]
  - Oedema [Unknown]

NARRATIVE: CASE EVENT DATE: 20210320
